FAERS Safety Report 14738906 (Version 3)
Quarter: 2018Q2

REPORT INFORMATION
  Report Type: Report from Study
  Country: None (occurrence: US)
  Receive Date: 20180409
  Receipt Date: 20180612
  Transmission Date: 20180711
  Serious: Yes (Hospitalization, Other)
  Sender: FDA-Public Use
  Company Number: US-ABBVIE-18K-163-2309868-00

PATIENT
  Age: 27 Year
  Sex: Male
  Weight: 93.07 kg

DRUGS (3)
  1. HUMIRA [Suspect]
     Active Substance: ADALIMUMAB
     Indication: CROHN^S DISEASE
     Route: 058
     Dates: start: 20180305, end: 20180305
  2. HUMIRA [Suspect]
     Active Substance: ADALIMUMAB
     Route: 058
     Dates: start: 20180319, end: 20180319
  3. HUMIRA [Suspect]
     Active Substance: ADALIMUMAB
     Route: 058
     Dates: start: 20180404, end: 20180514

REACTIONS (8)
  - Crohn^s disease [Recovering/Resolving]
  - Abdominal discomfort [Recovered/Resolved]
  - Intestinal perforation [Unknown]
  - Retching [Recovered/Resolved]
  - Frequent bowel movements [Recovered/Resolved]
  - Crohn^s disease [Recovered/Resolved]
  - Intestinal scarring [Recovered/Resolved]
  - Appendix disorder [Unknown]

NARRATIVE: CASE EVENT DATE: 20180325
